FAERS Safety Report 24351896 (Version 1)
Quarter: 2024Q3

REPORT INFORMATION
  Report Type: Spontaneous
  Country: US (occurrence: US)
  Receive Date: 20240923
  Receipt Date: 20240923
  Transmission Date: 20241017
  Serious: Yes (Other)
  Sender: CHEPLAPHARM
  Company Number: US-ROCHE-10000075078

PATIENT
  Age: 40 Year
  Sex: Female
  Weight: 61.9 kg

DRUGS (16)
  1. CLONAZEPAM [Suspect]
     Active Substance: CLONAZEPAM
     Indication: Anxiety
     Dosage: 1 MG, 2 EVERY 1 DAY?DAILY DOSE: 2 MILLIGRAM
     Route: 048
  2. CLONAZEPAM [Suspect]
     Active Substance: CLONAZEPAM
     Indication: Sleep disorder
     Dosage: 1 MG, 2 EVERY 1 DAY?DAILY DOSE: 2 MILLIGRAM
     Route: 048
  3. XOLAIR [Suspect]
     Active Substance: OMALIZUMAB
     Indication: Asthma
     Route: 058
     Dates: start: 20240903
  4. UBRELVY [Concomitant]
     Active Substance: UBROGEPANT
  5. RETIN-A [Concomitant]
     Active Substance: TRETINOIN
  6. TOPAMAX [Concomitant]
     Active Substance: TOPIRAMATE
  7. ZANAFLEX [Concomitant]
     Active Substance: TIZANIDINE HYDROCHLORIDE
  8. SPIRIVA [Concomitant]
     Active Substance: TIOTROPIUM BROMIDE MONOHYDRATE
  9. IMITREX [Concomitant]
     Active Substance: SUMATRIPTAN SUCCINATE
  10. CARAFATE [Concomitant]
     Active Substance: SUCRALFATE
  11. MIRALAX [Concomitant]
     Active Substance: POLYETHYLENE GLYCOL 3350
  12. PROTONIX [Concomitant]
     Active Substance: PANTOPRAZOLE SODIUM
  13. PATANOL [Concomitant]
     Active Substance: OLOPATADINE HYDROCHLORIDE
  14. ADALAT CC [Concomitant]
     Active Substance: NIFEDIPINE
  15. SINGULAIR [Concomitant]
     Active Substance: MONTELUKAST SODIUM
  16. VENTOLIN HFA [Concomitant]
     Active Substance: ALBUTEROL SULFATE

REACTIONS (13)
  - Change in seizure presentation [Unknown]
  - Syncope [Unknown]
  - Migraine [Unknown]
  - Sedation complication [Unknown]
  - Dizziness [Unknown]
  - Pharyngeal disorder [Unknown]
  - Cough [Unknown]
  - Serum ferritin decreased [Unknown]
  - Microcytosis [Unknown]
  - Epistaxis [Unknown]
  - Asthenia [Unknown]
  - Drug ineffective [Unknown]
  - Urticaria [Unknown]
